FAERS Safety Report 6232624-3 (Version None)
Quarter: 2009Q2

REPORT INFORMATION
  Report Type: 
  Country: None (occurrence: None)
  Receive Date: 20090615
  Receipt Date: 20090604
  Transmission Date: 20091009
  Serious: Yes (Death, Other)
  Sender: FDA-Public Use
  Company Number: 2009-02220

PATIENT
  Age: 81 Year
  Sex: Female

DRUGS (2)
  1. VELCADE [Suspect]
     Indication: MULTIPLE MYELOMA
     Dosage: 1 MG/M2, UNK, UNK
  2. DEXAMETHASONE TAB [Suspect]
     Indication: MULTIPLE MYELOMA
     Dosage: 20 MG, UNK, UNK

REACTIONS (2)
  - CARDIOMYOPATHY [None]
  - DISEASE PROGRESSION [None]
